FAERS Safety Report 16353670 (Version 1)
Quarter: 2019Q2

REPORT INFORMATION
  Report Type: Spontaneous
  Country: GB (occurrence: GB)
  Receive Date: 20190524
  Receipt Date: 20190524
  Transmission Date: 20190711
  Serious: Yes (Other)
  Sender: FDA-Public Use
  Company Number: GB-AMICUS THERAPEUTICS, INC.-AMI_454

PATIENT
  Age: 52 Year
  Sex: Male
  Weight: 81.6 kg

DRUGS (1)
  1. GALAFOLD [Suspect]
     Active Substance: MIGALASTAT HYDROCHLORIDE
     Indication: FABRY^S DISEASE
     Dosage: ALTERNATE DAYS, 2 PER DAY
     Route: 042
     Dates: start: 20180109, end: 20190401

REACTIONS (4)
  - Cardiomyopathy [Unknown]
  - Condition aggravated [Unknown]
  - Off label use [Unknown]
  - Overdose [Unknown]
